FAERS Safety Report 20714294 (Version 1)
Quarter: 2022Q2

REPORT INFORMATION
  Report Type: Spontaneous
  Country: US (occurrence: None)
  Receive Date: 20220414
  Receipt Date: 20220414
  Transmission Date: 20220721
  Serious: Yes (Hospitalization, Disabling)
  Sender: FDA-Public Use
  Company Number: None

PATIENT
  Age: 73 Year
  Sex: Female

DRUGS (1)
  1. TOBRAMYCIN [Suspect]
     Active Substance: TOBRAMYCIN
     Indication: Cystic fibrosis
     Dosage: FREQUENCY : TWICE A DAY;?OTHER ROUTE : NEBULIZATION;?
     Route: 055
     Dates: start: 20210611, end: 20220112

REACTIONS (2)
  - Dehydration [None]
  - Clostridium difficile infection [None]

NARRATIVE: CASE EVENT DATE: 20220112
